FAERS Safety Report 8511622 (Version 2)
Quarter: 2012Q4

REPORT INFORMATION
  Report Type: 
  Country: US (occurrence: US)
  Receive Date: 20120413
  Receipt Date: 20121015
  Transmission Date: 20130627
  Serious: No
  Sender: FDA-Public Use
  Company Number: US-ASTRAZENECA-2012SE02497

PATIENT
  Age: 59 Year
  Sex: Male

DRUGS (5)
  1. NEXIUM [Suspect]
     Route: 048
  2. AMLODIPINE [Concomitant]
  3. LISINOPRIL [Concomitant]
  4. NORVASC [Concomitant]
  5. PRAVASTATIN [Concomitant]

REACTIONS (5)
  - Gastrooesophageal reflux disease [Unknown]
  - Dysphagia [Unknown]
  - Oesophageal pain [Unknown]
  - Intentional drug misuse [Unknown]
  - Drug dose omission [Unknown]
